FAERS Safety Report 15554124 (Version 1)
Quarter: 2018Q4

REPORT INFORMATION
  Report Type: Spontaneous
  Country: US (occurrence: US)
  Receive Date: 20181025
  Receipt Date: 20181025
  Transmission Date: 20190205
  Serious: No
  Sender: FDA-Public Use
  Company Number: None

PATIENT
  Age: 34 Year
  Sex: Female
  Weight: 81 kg

DRUGS (7)
  1. AIMOVIG [Suspect]
     Active Substance: ERENUMAB-AOOE
     Indication: MIGRAINE
     Dosage: ?          QUANTITY:2 INJECTION(S);OTHER FREQUENCY:ONCE MONTHLY;?
     Route: 058
     Dates: start: 20180614, end: 20180814
  2. METHERGINE [Concomitant]
     Active Substance: METHYLERGONOVINE MALEATE
  3. MAGNESIUM [Concomitant]
     Active Substance: MAGNESIUM
  4. PROBIOTIC [Concomitant]
     Active Substance: PROBIOTICS NOS
  5. SIMVASTATIN. [Concomitant]
     Active Substance: SIMVASTATIN
  6. TIZANIDINE. [Concomitant]
     Active Substance: TIZANIDINE
  7. LEVOTHYROXINE. [Concomitant]
     Active Substance: LEVOTHYROXINE

REACTIONS (4)
  - Somnolence [None]
  - Impaired driving ability [None]
  - Impaired self-care [None]
  - Fatigue [None]

NARRATIVE: CASE EVENT DATE: 20180621
